FAERS Safety Report 11496295 (Version 1)
Quarter: 2015Q3

REPORT INFORMATION
  Report Type: Report from Study
  Country: FR (occurrence: FR)
  Receive Date: 20150911
  Receipt Date: 20150911
  Transmission Date: 20151125
  Serious: Yes (Hospitalization, Other)
  Sender: FDA-Public Use
  Company Number: FR-BRISTOL-MYERS SQUIBB COMPANY-BMS-2015-038428

PATIENT
  Age: 43 Year
  Sex: Female
  Weight: 51 kg

DRUGS (5)
  1. NIVOLUMAB [Suspect]
     Active Substance: NIVOLUMAB
     Dosage: 150 MG, UNK
     Route: 065
     Dates: start: 20150603
  2. NIVOLUMAB [Suspect]
     Active Substance: NIVOLUMAB
     Indication: MALIGNANT MELANOMA
     Dosage: 150 MG, UNK
     Route: 065
     Dates: start: 20150504
  3. NIVOLUMAB [Suspect]
     Active Substance: NIVOLUMAB
     Dosage: 150 UNK, UNK
     Route: 065
     Dates: start: 20150729
  4. NIVOLUMAB [Suspect]
     Active Substance: NIVOLUMAB
     Dosage: UNK MG, UNK
     Route: 065
     Dates: start: 20150617
  5. NIVOLUMAB [Suspect]
     Active Substance: NIVOLUMAB
     Dosage: 150 UNK, UNK
     Route: 065
     Dates: start: 20150701

REACTIONS (11)
  - Metastases to liver [Recovered/Resolved]
  - Blood thyroid stimulating hormone abnormal [Unknown]
  - Platelet disorder [Unknown]
  - Abdominal pain [Recovered/Resolved]
  - Hepatic necrosis [Recovered/Resolved]
  - Neutrophil count abnormal [Unknown]
  - Leukocytosis [Recovered/Resolved]
  - Inflammation [Recovered/Resolved]
  - Blood alkaline phosphatase abnormal [Unknown]
  - Haemoglobin abnormal [Unknown]
  - White blood cell disorder [Unknown]

NARRATIVE: CASE EVENT DATE: 20150513
